FAERS Safety Report 5804163-2 (Version None)
Quarter: 2008Q3

REPORT INFORMATION
  Report Type: 
  Country: None (occurrence: None)
  Receive Date: 20080709
  Receipt Date: 20080630
  Transmission Date: 20090109
  Serious: Yes (Hospitalization)
  Sender: FDA-Public Use
  Company Number: DE-JNJFOC-20080505064

PATIENT
  Sex: Male
  Weight: 63 kg

DRUGS (5)
  1. TMC125 [Suspect]
     Route: 048
  2. TMC125 [Suspect]
     Indication: HIV INFECTION
     Route: 048
  3. PREZISTA [Suspect]
     Indication: HIV INFECTION
     Route: 048
  4. TOREM [Suspect]
     Indication: DIURETIC THERAPY
  5. ALDACTONE [Suspect]
     Indication: DIURETIC THERAPY

REACTIONS (4)
  - GENERAL PHYSICAL HEALTH DETERIORATION [None]
  - HEPATIC CIRRHOSIS [None]
  - HYPONATRAEMIA [None]
  - HYPOVOLAEMIA [None]
